FAERS Safety Report 9133231 (Version 2)
Quarter: 2013Q1

REPORT INFORMATION
  Report Type: Report from Study
  Country: RU (occurrence: RU)
  Receive Date: 20130301
  Receipt Date: 20130319
  Transmission Date: 20140127
  Serious: Yes (Death)
  Sender: FDA-Public Use
  Company Number: RU-ABBOTT-13P-251-1054839-00

PATIENT
  Age: 67 Year
  Sex: Male

DRUGS (1)
  1. LUCRIN DEPOT [Suspect]
     Indication: PROSTATE CANCER
     Dates: start: 20111017, end: 201201

REACTIONS (1)
  - Disease progression [Fatal]
